FAERS Safety Report 12439843 (Version 1)
Quarter: 2016Q2

REPORT INFORMATION
  Report Type: Report from Study
  Country: US (occurrence: US)
  Receive Date: 20160606
  Receipt Date: 20160606
  Transmission Date: 20160815
  Serious: Yes (Hospitalization)
  Sender: FDA-Public Use
  Company Number: US-KADMON PHARMACEUTICALS, LLC-KAD201606-002037

PATIENT
  Age: 46 Year
  Sex: Female

DRUGS (2)
  1. RIBAVIRIN. [Suspect]
     Active Substance: RIBAVIRIN
     Indication: HEPATITIS C
     Dosage: TABLET
     Route: 048
     Dates: start: 20160127
  2. VIEKIRA PAK [Suspect]
     Active Substance: DASABUVIR\OMBITASVIR\PARITAPREVIR\RITONAVIR
     Indication: HEPATITIS C
     Dosage: TABLET
     Route: 048
     Dates: start: 20160127

REACTIONS (7)
  - Hepatic failure [Recovered/Resolved]
  - Fluid retention [Unknown]
  - Weight decreased [Unknown]
  - Renal failure [Recovered/Resolved]
  - Blood potassium decreased [Unknown]
  - Cardiac failure [Recovered/Resolved]
  - Ammonia increased [Unknown]

NARRATIVE: CASE EVENT DATE: 201605
